FAERS Safety Report 6790757-7 (Version None)
Quarter: 2010Q2

REPORT INFORMATION
  Report Type: 
  Country: None (occurrence: None)
  Receive Date: 20100624
  Receipt Date: 20100615
  Transmission Date: 20101027
  Serious: Yes (Death)
  Sender: FDA-Public Use
  Company Number: US-AMGEN-QUU418460

PATIENT
  Sex: Male

DRUGS (4)
  1. NPLATE [Suspect]
     Indication: IDIOPATHIC THROMBOCYTOPENIC PURPURA
     Dates: start: 20090619
  2. AZATHIOPRINE [Concomitant]
  3. DANAZOL [Concomitant]
  4. RITUXIMAB [Concomitant]

REACTIONS (1)
  - DEATH [None]
